FAERS Safety Report 9636091 (Version 1)
Quarter: 2013Q4

REPORT INFORMATION
  Report Type: Spontaneous
  Country: US (occurrence: US)
  Receive Date: 20131021
  Receipt Date: 20131021
  Transmission Date: 20140711
  Serious: Yes (Hospitalization)
  Sender: FDA-Public Use
  Company Number: US-MYLANLABS-2013S1022842

PATIENT
  Age: 59 Year
  Sex: Female

DRUGS (1)
  1. BUPROPION [Suspect]
     Indication: MAJOR DEPRESSION
     Route: 065
     Dates: start: 20110707

REACTIONS (1)
  - Dysphemia [Recovered/Resolved]
